FAERS Safety Report 11943081 (Version 1)
Quarter: 2016Q1

REPORT INFORMATION
  Report Type: Spontaneous
  Country: US (occurrence: US)
  Receive Date: 20160125
  Receipt Date: 20160125
  Transmission Date: 20160526
  Serious: No
  Sender: FDA-Public Use
  Company Number: US-UNITED THERAPEUTICS-UNT-2015-010461

PATIENT
  Age: 45 Year
  Sex: Female
  Weight: 87.98 kg

DRUGS (5)
  1. REMODULIN [Suspect]
     Active Substance: TREPROSTINIL
     Dosage: 0.016 ?G/KG/MIN,CONTINUING
     Route: 058
  2. REMODULIN [Suspect]
     Active Substance: TREPROSTINIL
     Dosage: 0.012 ?G/KG/MIN, CONTINUING
     Route: 058
     Dates: start: 20150818
  3. REMODULIN [Suspect]
     Active Substance: TREPROSTINIL
     Dosage: 0.031?G/KG/MIN,CONTINUING
     Route: 058
     Dates: start: 20150818
  4. REMODULIN [Suspect]
     Active Substance: TREPROSTINIL
     Indication: PULMONARY ARTERIAL HYPERTENSION
     Dosage: 0.022 ?G/KG/MIN, CONTINUING
     Route: 058
     Dates: start: 20150818
  5. REMODULIN [Suspect]
     Active Substance: TREPROSTINIL
     Dosage: 29 ?G/KG/MIN, CONTINUING
     Route: 058

REACTIONS (6)
  - Infusion site pain [Unknown]
  - Dermatitis contact [Unknown]
  - Insomnia [Unknown]
  - Diarrhoea [Unknown]
  - Pain in extremity [Recovering/Resolving]
  - Infusion site erythema [Unknown]

NARRATIVE: CASE EVENT DATE: 201508
